FAERS Safety Report 11030822 (Version 1)
Quarter: 2015Q2

REPORT INFORMATION
  Report Type: Spontaneous
  Country: DK (occurrence: CH)
  Receive Date: 20150415
  Receipt Date: 20150415
  Transmission Date: 20150821
  Serious: Yes (Hospitalization)
  Sender: FDA-Public Use
  Company Number: CH-FRI-1000075859

PATIENT
  Age: 78 Year
  Sex: Male

DRUGS (16)
  1. METRONIDAZOLE. [Concomitant]
     Active Substance: METRONIDAZOLE
     Indication: INFECTION PROPHYLAXIS
     Dosage: 1500 MG
     Route: 042
     Dates: start: 20141109, end: 20141112
  2. SERTRALINE [Suspect]
     Active Substance: SERTRALINE HYDROCHLORIDE
     Indication: DEPRESSION
     Dosage: 50 MG
     Route: 048
     Dates: start: 20141120
  3. DAFALGAN [Concomitant]
     Active Substance: ACETAMINOPHEN
     Indication: PAIN
     Dosage: 4 G
     Route: 048
     Dates: start: 20141110, end: 20141125
  4. VOTUM [Concomitant]
     Active Substance: OLMESARTAN MEDOXOMIL
     Indication: ESSENTIAL HYPERTENSION
     Dosage: 20 MG
     Route: 048
     Dates: start: 20141120
  5. NEXIUM [Suspect]
     Active Substance: ESOMEPRAZOLE MAGNESIUM
     Indication: DYSPEPSIA
     Dosage: 40 MG
     Route: 048
     Dates: start: 20141108
  6. SERESTA [Suspect]
     Active Substance: OXAZEPAM
     Indication: DEPRESSION
     Dosage: 300 MG
     Route: 048
     Dates: start: 20141030, end: 20141119
  7. AMLODIPINE [Concomitant]
     Active Substance: AMLODIPINE BESYLATE
     Indication: ESSENTIAL HYPERTENSION
     Dosage: 5 MG
     Route: 048
     Dates: start: 20141119
  8. CITALOPRAM [Suspect]
     Active Substance: CITALOPRAM HYDROBROMIDE
     Indication: DEPRESSION
     Dosage: 20 MG
     Route: 048
     Dates: start: 2014, end: 20141113
  9. MOTILIUM [Concomitant]
     Active Substance: DOMPERIDONE
     Indication: DYSPEPSIA
     Dosage: 30 MG
     Route: 048
     Dates: start: 20141109, end: 20141126
  10. ANXIOLIT [Concomitant]
     Active Substance: OXAZEPAM
     Indication: ANXIETY
     Dosage: 60 MG
     Route: 048
     Dates: start: 20141108, end: 20141120
  11. TRAMAL [Concomitant]
     Active Substance: TRAMADOL
     Indication: PAIN
     Dosage: 200 MG
     Route: 048
     Dates: start: 20141109, end: 20141112
  12. SERESTA [Suspect]
     Active Substance: OXAZEPAM
     Dosage: 90 MG DAILY
     Route: 048
     Dates: start: 20141121
  13. FLAGYL [Concomitant]
     Active Substance: METRONIDAZOLE\METRONIDAZOLE HYDROCHLORIDE
     Indication: INFECTION PROPHYLAXIS
     Dosage: 1500 MG
     Route: 048
     Dates: start: 20141112, end: 20141113
  14. QUETIAPINE [Concomitant]
     Active Substance: QUETIAPINE
     Indication: DEPRESSION
     Dosage: 12.5 MG
     Route: 048
     Dates: start: 20141121, end: 20141126
  15. CEFTRIAXONE. [Concomitant]
     Active Substance: CEFTRIAXONE
     Indication: INFECTION PROPHYLAXIS
     Dosage: 2000 MG
     Route: 042
     Dates: start: 20141109, end: 20141112
  16. CIPROFLOXACINE [Concomitant]
     Active Substance: CIPROFLOXACIN
     Indication: INFECTION PROPHYLAXIS
     Dosage: 1000 MG
     Route: 048
     Dates: start: 20141112, end: 20141113

REACTIONS (2)
  - Inappropriate antidiuretic hormone secretion [Recovered/Resolved]
  - Drug withdrawal syndrome [Recovered/Resolved]

NARRATIVE: CASE EVENT DATE: 20141108
